FAERS Safety Report 9688371 (Version 1)
Quarter: 2013Q4

REPORT INFORMATION
  Report Type: Spontaneous
  Country: US (occurrence: None)
  Receive Date: 20131113
  Receipt Date: 20131113
  Transmission Date: 20140711
  Serious: No
  Sender: FDA-Public Use
  Company Number: None

PATIENT
  Age: 74 None
  Sex: Female

DRUGS (2)
  1. LIPITOR [Suspect]
     Dates: start: 20120123, end: 20120308
  2. PRAVASTATIN [Suspect]
     Dates: start: 20120307, end: 20120507

REACTIONS (3)
  - Drug-induced liver injury [None]
  - Myalgia [None]
  - Hepatic necrosis [None]
